FAERS Safety Report 6194098-0 (Version None)
Quarter: 2009Q2

REPORT INFORMATION
  Report Type: 
  Country: None (occurrence: None)
  Receive Date: 20090518
  Receipt Date: 20080721
  Transmission Date: 20091009
  Serious: Yes (Other)
  Sender: FDA-Public Use
  Company Number: PHBS2008DK05029

PATIENT
  Age: 12 Year
  Sex: Female

DRUGS (2)
  1. BUDESONIDE [Suspect]
  2. FORMOTEROL FUMARATE [Suspect]

REACTIONS (2)
  - ADRENAL INSUFFICIENCY [None]
  - FATIGUE [None]
